FAERS Safety Report 25157017 (Version 1)
Quarter: 2025Q2

REPORT INFORMATION
  Report Type: Spontaneous
  Country: GB (occurrence: GB)
  Receive Date: 20250403
  Receipt Date: 20250403
  Transmission Date: 20250717
  Serious: Yes (Disabling, Other)
  Sender: TEVA
  Company Number: None

PATIENT
  Age: 18 Year
  Sex: Female

DRUGS (2)
  1. TRIMETHOPRIM [Suspect]
     Active Substance: TRIMETHOPRIM
     Indication: Urinary tract infection
     Dosage: TWO 30MG TABLETS EVERY MORNING AND EVERY NIGHT.
     Route: 065
  2. POLYMYXIN [Suspect]
     Active Substance: POLYMYXIN
     Indication: Urinary tract infection
     Dosage: TWO 30MG TABLETS EVERY MORNING AND EVERY NIGHT.
     Route: 065

REACTIONS (1)
  - Abdominal pain [Not Recovered/Not Resolved]

NARRATIVE: CASE EVENT DATE: 20250325
